FAERS Safety Report 11871125 (Version 1)
Quarter: 2015Q4

REPORT INFORMATION
  Report Type: Spontaneous
  Country: DE (occurrence: DE)
  Receive Date: 20151228
  Receipt Date: 20151228
  Transmission Date: 20160305
  Serious: Yes (Other)
  Sender: FDA-Public Use
  Company Number: DE-AMGEN-DEUSP2015137729

PATIENT
  Age: 68 Year
  Weight: 70 kg

DRUGS (14)
  1. PREDNISONE. [Concomitant]
     Active Substance: PREDNISONE
     Dosage: 185 MG, UNK
     Route: 048
     Dates: start: 20150429
  2. RITUXIMAB [Concomitant]
     Active Substance: RITUXIMAB
     Dosage: 693 MG
     Route: 042
     Dates: start: 20150428
  3. PROLIA [Suspect]
     Active Substance: DENOSUMAB
     Indication: OSTEOPOROSIS
     Dosage: UNK UNK, UNK
     Route: 065
     Dates: end: 201310
  4. DEXAMETHASONE. [Concomitant]
     Active Substance: DEXAMETHASONE
     Dosage: 8 MG, UNK
     Route: 042
     Dates: start: 20150429
  5. DOXORUBICIN [Concomitant]
     Active Substance: DOXORUBICIN
     Dosage: 92 MG
     Route: 042
     Dates: start: 20150429
  6. CYCLOPHOSPHAMID [Concomitant]
     Active Substance: CYCLOPHOSPHAMIDE
     Dosage: 1.390 MG, UNK
     Route: 042
     Dates: start: 20150429
  7. TAVEGIL                            /00137201/ [Concomitant]
     Active Substance: CLEMASTINE FUMARATE
     Dosage: 2 MG, UNK
     Route: 042
     Dates: start: 20150429
  8. VINCRISTINE [Concomitant]
     Active Substance: VINCRISTINE
     Dosage: 2 MG
     Route: 042
     Dates: start: 20150429
  9. MESNA. [Concomitant]
     Active Substance: MESNA
     Dosage: 400 MG
     Route: 048
     Dates: start: 20150429
  10. SOSTRIL                            /00550802/ [Concomitant]
     Dosage: 50 MG, UNK
     Route: 042
     Dates: start: 20150429
  11. MESNA. [Concomitant]
     Active Substance: MESNA
     Dosage: 400 MG
     Route: 042
     Dates: start: 20150429
  12. ONDANSETRON                        /00955302/ [Concomitant]
     Dosage: 8 MG, UNK
     Route: 042
     Dates: start: 20150429
  13. PREDNISONE. [Concomitant]
     Active Substance: PREDNISONE
     Dosage: 50 MG, FOR FIVE DAYS
     Route: 048
  14. VITAMIN D                          /00107901/ [Concomitant]
     Active Substance: ERGOCALCIFEROL
     Route: 065

REACTIONS (2)
  - Lumbar vertebral fracture [Unknown]
  - B-cell lymphoma [Unknown]
